FAERS Safety Report 6115726-1 (Version None)
Quarter: 2009Q1

REPORT INFORMATION
  Report Type: 
  Country: None (occurrence: None)
  Receive Date: 20090313
  Receipt Date: 20090305
  Transmission Date: 20090719
  Serious: Yes (Hospitalization)
  Sender: FDA-Public Use
  Company Number: US-GENENTECH-278723

PATIENT
  Age: 65 Year
  Sex: Male

DRUGS (6)
  1. AVASTIN [Suspect]
     Indication: GLIOBLASTOMA MULTIFORME
     Dosage: 10 MG/KG, Q2W
  2. ERLOTINIB [Suspect]
     Indication: GLIOBLASTOMA MULTIFORME
  3. RADIATION [Concomitant]
     Indication: GLIOBLASTOMA MULTIFORME
  4. TEMODAR [Concomitant]
     Indication: GLIOBLASTOMA MULTIFORME
  5. IRINOTECAN HCL [Concomitant]
     Indication: GLIOBLASTOMA MULTIFORME
  6. CARMUSTINE [Concomitant]
     Indication: GLIOBLASTOMA MULTIFORME

REACTIONS (3)
  - BLOOD CREATININE INCREASED [None]
  - HYPERTENSION [None]
  - PROTEINURIA [None]
